FAERS Safety Report 13136771 (Version 1)
Quarter: 2017Q1

REPORT INFORMATION
  Report Type: Spontaneous
  Country: US (occurrence: US)
  Receive Date: 20170123
  Receipt Date: 20170123
  Transmission Date: 20170428
  Serious: Yes (Other)
  Sender: FDA-Public Use
  Company Number: US-GLAXOSMITHKLINE-US2017007440

PATIENT
  Age: 83 Year
  Sex: Female

DRUGS (1)
  1. KERI MOISTURE RICH OIL SHOWER + BATH CUTANEOUS LIQUID [Suspect]
     Active Substance: COSMETICS
     Indication: DRY SKIN PROPHYLAXIS
     Dosage: UNK
     Dates: end: 2015

REACTIONS (1)
  - Knee arthroplasty [Recovered/Resolved]
